FAERS Safety Report 4901792-5 (Version None)
Quarter: 2006Q1

REPORT INFORMATION
  Report Type: 
  Country: None (occurrence: None)
  Receive Date: 20060201
  Receipt Date: 20060201
  Transmission Date: 20060701
  Serious: Yes (Hospitalization)
  Sender: FDA-Public Use
  Company Number: None

PATIENT
  Age: 74 Year
  Sex: Female
  Weight: 69.8539 kg

DRUGS (9)
  1. TAXOTERE [Suspect]
     Indication: BREAST CANCER METASTATIC
     Dosage: 130 MG  Q 3 WK  IV
     Route: 042
     Dates: start: 20050526, end: 20060106
  2. BEVACIZUMAB [Suspect]
     Indication: BREAST CANCER METASTATIC
     Dosage: 1064 MG Q 3 WK  IV
     Route: 042
     Dates: start: 20050817, end: 20060106
  3. BEVACIZUMAB [Suspect]
  4. ZOSYN [Concomitant]
  5. LAVAQUIN [Concomitant]
  6. AUGMENTIN '125' [Concomitant]
  7. FLAGYL [Concomitant]
  8. HEPARIN [Concomitant]
  9. PAXIL [Concomitant]

REACTIONS (3)
  - PLEURAL EFFUSION [None]
  - PNEUMONIA [None]
  - RESPIRATORY FAILURE [None]
